FAERS Safety Report 21057550 (Version 1)
Quarter: 2022Q3

REPORT INFORMATION
  Report Type: Spontaneous
  Country: US (occurrence: US)
  Receive Date: 20220708
  Receipt Date: 20220708
  Transmission Date: 20221027
  Serious: Yes (Disabling)
  Sender: FDA-Public Use
  Company Number: US-MYLANLABS-2022M1051243

PATIENT
  Age: 52 Year
  Sex: Female

DRUGS (5)
  1. NITROGLYCERIN [Suspect]
     Active Substance: NITROGLYCERIN
     Indication: Angiopathy
     Dosage: UNK
     Route: 013
  2. ASPIRIN [Suspect]
     Active Substance: ASPIRIN
     Indication: Angiopathy
     Dosage: UNK
     Route: 065
  3. DOXAZOSIN [Suspect]
     Active Substance: DOXAZOSIN MESYLATE
     Indication: Angiopathy
     Dosage: UNK
     Route: 065
  4. BOTOX [Suspect]
     Active Substance: ONABOTULINUMTOXINA
     Indication: Angiopathy
     Dosage: UNK, DIGITAL BOTULINUM TOXIN-A [BOTOX] INJECTIONS
     Route: 065
  5. EPOPROSTENOL [Suspect]
     Active Substance: EPOPROSTENOL
     Indication: Angiopathy
     Dosage: UNK
     Route: 042

REACTIONS (2)
  - Drug ineffective [Unknown]
  - Off label use [Unknown]
